FAERS Safety Report 23630857 (Version 1)
Quarter: 2024Q1

REPORT INFORMATION
  Report Type: Spontaneous
  Country: FR (occurrence: FR)
  Receive Date: 20240314
  Receipt Date: 20240314
  Transmission Date: 20240410
  Serious: Yes (Hospitalization)
  Sender: FDA-Public Use
  Company Number: None

PATIENT
  Age: 14 Year
  Sex: Female
  Weight: 67 kg

DRUGS (19)
  1. HYDROXYZINE HYDROCHLORIDE [Suspect]
     Active Substance: HYDROXYZINE HYDROCHLORIDE
     Indication: Anxiety
     Dosage: CHLORHYDRATE D^HYDROXYZINE
     Route: 065
     Dates: start: 20240109
  2. DEXCHLORPHENIRAMINE (MALEATE) [Concomitant]
     Indication: Product used for unknown indication
     Dosage: DEXCHLORPHENIRAMINE (MALEATE DE)
     Route: 065
     Dates: start: 20240104
  3. NEFOPAM HYDROCHLORIDE [Suspect]
     Active Substance: NEFOPAM HYDROCHLORIDE
     Indication: Pain
     Dosage: CHLORHYDRATE DE NEFOPAM
     Route: 065
     Dates: start: 20240106, end: 20240114
  4. MELATONIN [Concomitant]
     Active Substance: MELATONIN
     Indication: Product used for unknown indication
     Route: 065
     Dates: start: 20240103
  5. CIDOFOVIR DIHYDRATE [Concomitant]
     Active Substance: CIDOFOVIR
     Indication: Product used for unknown indication
     Route: 065
     Dates: start: 20240113
  6. ALIZAPRIDE HYDROCHLORIDE [Suspect]
     Active Substance: ALIZAPRIDE HYDROCHLORIDE
     Indication: Nausea
     Dosage: ALIZAPRIDE (CHLORHYDRATE D^)
     Route: 065
     Dates: start: 20231230, end: 20240115
  7. LIDOCAINE [Concomitant]
     Active Substance: LIDOCAINE
     Indication: Product used for unknown indication
     Route: 065
     Dates: start: 20240112
  8. SPIRONOLACTONE [Concomitant]
     Active Substance: SPIRONOLACTONE
     Indication: Product used for unknown indication
     Route: 065
     Dates: start: 20240112
  9. PROBENECID [Interacting]
     Active Substance: PROBENECID
     Indication: Nephropathy toxic
     Route: 048
     Dates: start: 20240113, end: 20240126
  10. HYDROCORTISONE [Concomitant]
     Active Substance: HYDROCORTISONE
     Indication: Product used for unknown indication
     Route: 065
     Dates: start: 20231231, end: 20240115
  11. VANCOMYCIN [Concomitant]
     Active Substance: VANCOMYCIN
     Indication: Product used for unknown indication
     Route: 065
     Dates: start: 20240112, end: 20240114
  12. NALOXONE MERCK [Concomitant]
     Indication: Product used for unknown indication
     Dosage: 0.4 MG/1 ML, SOLUTION FOR INJECTION IN AMPOULE
     Route: 065
     Dates: start: 20240108, end: 20240114
  13. FILGRASTIM [Concomitant]
     Active Substance: FILGRASTIM
     Indication: Product used for unknown indication
     Dosage: 30 MU/0.5 ML, SOLUTION FOR INJECTION OR INFUSION IN PRE-FILLED SYRINGE
     Route: 065
     Dates: start: 20240106
  14. TRANEXAMIC ACID [Suspect]
     Active Substance: TRANEXAMIC ACID
     Indication: Haemorrhage
     Route: 048
     Dates: start: 20231230, end: 20240114
  15. MORPHINE [Concomitant]
     Active Substance: MORPHINE
     Indication: Product used for unknown indication
     Route: 065
     Dates: start: 20240101
  16. CIPROFLOXACIN [Interacting]
     Active Substance: CIPROFLOXACIN
     Indication: Ureteritis
     Route: 042
     Dates: start: 20240104, end: 20240114
  17. ONDANSETRON [Suspect]
     Active Substance: ONDANSETRON
     Indication: Vomiting
     Route: 042
     Dates: start: 20231230
  18. MEROPENEM ANHYDROUS [Interacting]
     Active Substance: MEROPENEM ANHYDROUS
     Indication: Ureteritis
     Dosage: MEROPENEM ANHYDRE
     Route: 042
     Dates: start: 20231231, end: 20240115
  19. COLPRONE [Concomitant]
     Active Substance: MEDROGESTONE
     Indication: Product used for unknown indication
     Route: 065
     Dates: start: 20231230

REACTIONS (3)
  - Seizure [Recovering/Resolving]
  - Drug interaction [Recovering/Resolving]
  - Drug interaction [Recovering/Resolving]

NARRATIVE: CASE EVENT DATE: 20240113
